FAERS Safety Report 20755093 (Version 2)
Quarter: 2022Q2

REPORT INFORMATION
  Report Type: Spontaneous
  Country: JP (occurrence: JP)
  Receive Date: 20220427
  Receipt Date: 20220503
  Transmission Date: 20220720
  Serious: Yes (Other)
  Sender: FDA-Public Use
  Company Number: JP-NOVARTISPH-NVSJ2022JP089173

PATIENT
  Sex: Male

DRUGS (1)
  1. IMATINIB MESYLATE [Suspect]
     Active Substance: IMATINIB MESYLATE
     Indication: Gastrointestinal stromal tumour
     Dosage: UNK
     Route: 065

REACTIONS (2)
  - Renal impairment [Unknown]
  - Undifferentiated sarcoma [Unknown]
